FAERS Safety Report 13073580 (Version 1)
Quarter: 2016Q4

REPORT INFORMATION
  Report Type: Report from Study
  Country: NO (occurrence: NO)
  Receive Date: 20161229
  Receipt Date: 20161229
  Transmission Date: 20170207
  Serious: Yes (Other)
  Sender: FDA-Public Use
  Company Number: PHHY2014NO159086

PATIENT
  Age: 46 Year
  Sex: Female

DRUGS (1)
  1. GILENYA [Suspect]
     Active Substance: FINGOLIMOD HYDROCHLORIDE
     Indication: MULTIPLE SCLEROSIS
     Dosage: UNK
     Route: 048

REACTIONS (4)
  - Lymphopenia [Not Recovered/Not Resolved]
  - White blood cell count decreased [Unknown]
  - Urinary retention [Recovered/Resolved]
  - Electrocardiogram PR prolongation [Recovered/Resolved]

NARRATIVE: CASE EVENT DATE: 20141120
